FAERS Safety Report 6502046-6 (Version None)
Quarter: 2009Q4

REPORT INFORMATION
  Report Type: 
  Country: None (occurrence: None)
  Receive Date: 20091214
  Receipt Date: 20091126
  Transmission Date: 20100525
  Serious: Yes (Other)
  Sender: FDA-Public Use
  Company Number: DSA_42162_2009

PATIENT
  Sex: Male

DRUGS (5)
  1. DILTIAZEM HCL [Suspect]
     Indication: DRUG USE FOR UNKNOWN INDICATION
     Dosage: DF ORAL
     Route: 048
  2. LIPITOR [Suspect]
     Indication: BLOOD CHOLESTEROL
     Dosage: 10 MG QD ORAL
     Route: 048
     Dates: start: 20090721, end: 20090901
  3. HYDROCHLOROTHIAZIDE [Concomitant]
  4. ZOPICLONE [Concomitant]
  5. VIAGRA [Concomitant]

REACTIONS (7)
  - CONSTIPATION [None]
  - DRUG INTERACTION [None]
  - FATIGUE [None]
  - FLATULENCE [None]
  - HAEMORRHOIDAL HAEMORRHAGE [None]
  - HEADACHE [None]
  - MYALGIA [None]
